FAERS Safety Report 15772018 (Version 4)
Quarter: 2020Q1

REPORT INFORMATION
  Report Type: Spontaneous
  Country: US (occurrence: US)
  Receive Date: 20181228
  Receipt Date: 20200313
  Transmission Date: 20200409
  Serious: Yes (Hospitalization, Other)
  Sender: FDA-Public Use
  Company Number: US-SAKK-2018SA394450AA

PATIENT
  Age: 62 Year
  Sex: Female

DRUGS (1)
  1. DUPIXENT [Suspect]
     Active Substance: DUPILUMAB
     Indication: DERMATITIS ATOPIC
     Dosage: 300 MG, QOW
     Route: 058
     Dates: start: 20180403

REACTIONS (12)
  - Influenza [Recovered/Resolved]
  - Hypoaesthesia [Unknown]
  - Peripheral swelling [Unknown]
  - Visual impairment [Unknown]
  - Intervertebral disc protrusion [Unknown]
  - Back pain [Unknown]
  - Grip strength decreased [Unknown]
  - Erythema [Unknown]
  - Glucose tolerance impaired [Unknown]
  - Spinal compression fracture [Unknown]
  - Peripheral coldness [Unknown]
  - Gait disturbance [Unknown]

NARRATIVE: CASE EVENT DATE: 20200224
